FAERS Safety Report 15467473 (Version 1)
Quarter: 2018Q4

REPORT INFORMATION
  Report Type: Spontaneous
  Country: US (occurrence: US)
  Receive Date: 20181001
  Receipt Date: 20181001
  Transmission Date: 20190204
  Serious: No
  Sender: FDA-Public Use
  Company Number: None

PATIENT
  Age: 81 Year
  Sex: Female

DRUGS (4)
  1. FASLODEX [Concomitant]
     Active Substance: FULVESTRANT
  2. IBRANCE [Suspect]
     Active Substance: PALBOCICLIB
  3. XGEVA [Concomitant]
     Active Substance: DENOSUMAB
  4. RADIATION [Concomitant]
     Active Substance: RADIATION THERAPY

REACTIONS (5)
  - Flatulence [None]
  - Therapy cessation [None]
  - Diarrhoea [None]
  - Constipation [None]
  - Gastrointestinal pain [None]

NARRATIVE: CASE EVENT DATE: 20180927
